FAERS Safety Report 9629096 (Version 2)
Quarter: 2014Q1

REPORT INFORMATION
  Report Type: Spontaneous
  Country: AT (occurrence: AT)
  Receive Date: 20131017
  Receipt Date: 20140213
  Transmission Date: 20141002
  Serious: Yes (Life-Threatening, Hospitalization, Other)
  Sender: FDA-Public Use
  Company Number: AT-PFIZER INC-2013295525

PATIENT
  Age: 18 Year
  Sex: Male

DRUGS (10)
  1. TEMESTA [Suspect]
     Dosage: UNK
     Route: 042
     Dates: start: 20130806, end: 20130812
  2. PANTOLOC [Suspect]
     Dosage: 40 MG, 1X/DAY
     Route: 042
     Dates: start: 20130807, end: 20130814
  3. HALDOL [Suspect]
     Dosage: UNK
     Route: 042
     Dates: start: 20130806, end: 20130814
  4. ZYPREXA [Suspect]
     Dosage: 10 MG, 1X/DAY
     Route: 030
     Dates: start: 20130812, end: 20130813
  5. TRITTICO [Suspect]
     Dosage: 150 MG, 1X/DAY
     Dates: start: 20130807, end: 20130813
  6. DEXDOR [Concomitant]
  7. DORMICUM FOR INJECTION [Concomitant]
     Dosage: UNK
     Route: 042
     Dates: start: 20130813, end: 20130814
  8. NUBAIN [Concomitant]
     Dosage: UNK
     Route: 058
     Dates: end: 20130812
  9. HYOSCINE [Concomitant]
     Dosage: UNK
     Route: 058
     Dates: end: 20130812
  10. LOVENOX [Concomitant]
     Dosage: 20 MG, 1X/DAY
     Dates: start: 20130806, end: 20130813

REACTIONS (4)
  - Pulmonary embolism [Recovered/Resolved]
  - Depressed level of consciousness [Recovered/Resolved]
  - Tachycardia [Recovered/Resolved]
  - Cardiac disorder [Recovered/Resolved]
